FAERS Safety Report 14132082 (Version 2)
Quarter: 2017Q4

REPORT INFORMATION
  Report Type: Spontaneous
  Country: IN (occurrence: IN)
  Receive Date: 20171027
  Receipt Date: 20171120
  Transmission Date: 20180321
  Serious: Yes (Other)
  Sender: FDA-Public Use
  Company Number: IN-GLENMARK PHARMACEUTICALS-2017GMK029302

PATIENT

DRUGS (1)
  1. LIZOLID 600 [Suspect]
     Active Substance: LINEZOLID
     Indication: TUBERCULOSIS
     Dosage: 600 MG, BID
     Route: 065
     Dates: start: 201709, end: 201709

REACTIONS (2)
  - Product use in unapproved indication [Unknown]
  - Optic neuritis [Recovering/Resolving]
